FAERS Safety Report 11757573 (Version 1)
Quarter: 2015Q4

REPORT INFORMATION
  Report Type: Report from Study
  Country: GB (occurrence: GB)
  Receive Date: 20151120
  Receipt Date: 20151120
  Transmission Date: 20160304
  Serious: Yes (Death, Other)
  Sender: FDA-Public Use
  Company Number: GB-ROCHE-1660517

PATIENT

DRUGS (18)
  1. COCAINE [Suspect]
     Active Substance: COCAINE
     Indication: SUBSTANCE USE
     Route: 065
  2. CANNABIS [Suspect]
     Active Substance: CANNABIS SATIVA SUBSP. INDICA TOP
     Indication: SUBSTANCE USE
     Route: 065
  3. ALPRAZOLAM. [Suspect]
     Active Substance: ALPRAZOLAM
     Indication: SUBSTANCE USE
     Route: 065
  4. FENTANYL. [Suspect]
     Active Substance: FENTANYL
     Indication: SUBSTANCE USE
     Route: 065
  5. METHAMPHETAMINE [Suspect]
     Active Substance: METHAMPHETAMINE
     Indication: SUBSTANCE USE
     Route: 065
  6. GAMMA HYDROXYBUTYRATE [Suspect]
     Active Substance: 4-HYDROXYBUTANOIC ACID
     Indication: SUBSTANCE USE
     Route: 065
  7. HEROIN [Suspect]
     Active Substance: DIACETYLMORPHINE
     Indication: SUBSTANCE USE
     Route: 065
  8. METHADONE [Suspect]
     Active Substance: METHADONE HYDROCHLORIDE
     Indication: SUBSTANCE USE
     Route: 065
  9. N-METHYLEPHEDRONE [Suspect]
     Active Substance: METAMFEPRAMONE
     Indication: SUBSTANCE USE
     Route: 065
  10. MDMA [Suspect]
     Active Substance: METHYLENEDIOXYMETHAMPHETAMINE
     Indication: SUBSTANCE USE
     Route: 065
  11. CLONAZEPAM. [Suspect]
     Active Substance: CLONAZEPAM
     Indication: SUBSTANCE USE
     Route: 065
  12. CRACK COCAINE [Suspect]
     Active Substance: COCAINE
     Indication: SUBSTANCE USE
     Route: 065
  13. BUPRENORPHINE. [Suspect]
     Active Substance: BUPRENORPHINE
     Indication: SUBSTANCE USE
     Route: 065
  14. KETAMINE [Suspect]
     Active Substance: KETAMINE
     Indication: SUBSTANCE USE
     Route: 065
  15. DIAZEPAM. [Suspect]
     Active Substance: DIAZEPAM
     Indication: SUBSTANCE USE
     Route: 065
  16. CAFFEINE. [Suspect]
     Active Substance: CAFFEINE
     Indication: SUBSTANCE USE
     Route: 065
  17. AMPHETAMINE [Suspect]
     Active Substance: AMPHETAMINE
     Indication: SUBSTANCE USE
     Route: 065
  18. PREGABALIN. [Suspect]
     Active Substance: PREGABALIN
     Indication: SUBSTANCE USE
     Route: 065

REACTIONS (23)
  - Dyspnoea [Unknown]
  - Hallucination [Unknown]
  - Seizure [Unknown]
  - Respiratory rate decreased [Unknown]
  - Aggression [Unknown]
  - Anxiety [Unknown]
  - Hypotension [Unknown]
  - Nervous system disorder [Unknown]
  - Blood creatine phosphokinase increased [Unknown]
  - Hypertension [Unknown]
  - Heart rate increased [Unknown]
  - Heart rate decreased [Unknown]
  - Body temperature increased [Unknown]
  - Agitation [Unknown]
  - Vomiting [Unknown]
  - Cardiac arrest [Fatal]
  - Palpitations [Unknown]
  - Chest pain [Unknown]
  - Psychotic disorder [Unknown]
  - Blood creatinine increased [Unknown]
  - Headache [Unknown]
  - Arrhythmia [Unknown]
  - Coma [Unknown]
